FAERS Safety Report 9189422 (Version 1)
Quarter: 2013Q1

REPORT INFORMATION
  Report Type: Spontaneous
  Country: US (occurrence: US)
  Receive Date: 20130326
  Receipt Date: 20130326
  Transmission Date: 20140127
  Serious: Yes (Death)
  Sender: FDA-Public Use
  Company Number: PHEH2013US006764

PATIENT
  Age: 83 Year
  Sex: Male

DRUGS (1)
  1. ZORTRESS [Suspect]
     Dosage: 0.25 MG, BID
     Route: 048

REACTIONS (1)
  - Death [Fatal]
